FAERS Safety Report 10491495 (Version 1)
Quarter: 2014Q4

REPORT INFORMATION
  Report Type: Spontaneous
  Country: US (occurrence: US)
  Receive Date: 20141002
  Receipt Date: 20141002
  Transmission Date: 20150528
  Serious: No
  Sender: FDA-Public Use
  Company Number: US-GLAXOSMITHKLINE-A1054129A

PATIENT
  Sex: Female

DRUGS (17)
  1. TRAMADOL [Concomitant]
     Active Substance: TRAMADOL
  2. ADVAIR HFA [Suspect]
     Active Substance: FLUTICASONE PROPIONATE\SALMETEROL XINAFOATE
     Indication: CHRONIC OBSTRUCTIVE PULMONARY DISEASE
     Dosage: 1PUFF TWICE PER DAY
     Route: 055
  3. FLUOXETINE [Concomitant]
     Active Substance: FLUOXETINE\FLUOXETINE HYDROCHLORIDE
  4. DILTIAZEM [Concomitant]
     Active Substance: DILTIAZEM
  5. LORAZEPAM. [Concomitant]
     Active Substance: LORAZEPAM
  6. FLUTICASONE NASAL SPRAY [Concomitant]
     Active Substance: FLUTICASONE\FLUTICASONE PROPIONATE
  7. SYMBICORT [Concomitant]
     Active Substance: BUDESONIDE\FORMOTEROL FUMARATE DIHYDRATE
  8. MULTAQ [Concomitant]
     Active Substance: DRONEDARONE
  9. OXYGEN. [Concomitant]
     Active Substance: OXYGEN
  10. SPIRIVA [Concomitant]
     Active Substance: TIOTROPIUM BROMIDE MONOHYDRATE
  11. TEMAZEPAM. [Concomitant]
     Active Substance: TEMAZEPAM
  12. DALIRESP [Concomitant]
     Active Substance: ROFLUMILAST
  13. SUMATRIPTAN. [Concomitant]
     Active Substance: SUMATRIPTAN
  14. TYLENOL [Concomitant]
     Active Substance: ACETAMINOPHEN
  15. NORTRIPTYLINE [Concomitant]
     Active Substance: NORTRIPTYLINE
  16. PROAIR HFA [Concomitant]
     Active Substance: ALBUTEROL SULFATE
  17. GUAIFENESIN. [Concomitant]
     Active Substance: GUAIFENESIN

REACTIONS (3)
  - Drug ineffective [Not Recovered/Not Resolved]
  - Poor quality sleep [Unknown]
  - Fungal infection [Unknown]
